FAERS Safety Report 6920177-3 (Version None)
Quarter: 2010Q3

REPORT INFORMATION
  Report Type: 
  Country: None (occurrence: None)
  Receive Date: 20100809
  Receipt Date: 20100727
  Transmission Date: 20110219
  Serious: Yes (Death)
  Sender: FDA-Public Use
  Company Number: B0668262A

PATIENT

DRUGS (5)
  1. MELPHALAN HYDROCHLORIDE [Suspect]
     Indication: STEM CELL TRANSPLANT
  2. FLUDARABINE PHOSPHATE [Suspect]
     Indication: STEM CELL TRANSPLANT
  3. CYCLOSPORINE [Concomitant]
  4. METHOTREXATE [Concomitant]
  5. ANTI-INFECTIVE MEDICATION [Concomitant]

REACTIONS (2)
  - DRUG TOXICITY [None]
  - VENOOCCLUSIVE LIVER DISEASE [None]
